FAERS Safety Report 7386768-3 (Version None)
Quarter: 2011Q1

REPORT INFORMATION
  Report Type: 
  Country: None (occurrence: None)
  Receive Date: 20110331
  Receipt Date: 20110324
  Transmission Date: 20110831
  Serious: Yes (Hospitalization)
  Sender: FDA-Public Use
  Company Number: FR-ASTRAZENECA-2009CG00658

PATIENT
  Age: 25579 Day
  Sex: Male
  Weight: 100 kg

DRUGS (6)
  1. EFFEXOR [Concomitant]
     Indication: DEPRESSION
     Route: 048
  2. IMOVANE [Concomitant]
     Indication: INSOMNIA
     Route: 048
  3. DECAPEPTYL [Concomitant]
     Indication: PROSTATE CANCER
     Route: 058
  4. VANDETANIB [Suspect]
     Indication: PROSTATE CANCER METASTATIC
     Route: 048
     Dates: start: 20090110, end: 20090406
  5. PREVISCAN [Concomitant]
     Indication: THROMBOSIS PROPHYLAXIS
     Route: 048
  6. CASODEX [Suspect]
     Indication: PROSTATE CANCER METASTATIC
     Route: 048
     Dates: start: 20090110, end: 20090406

REACTIONS (1)
  - PHOTOSENSITIVITY REACTION [None]
